FAERS Safety Report 10015666 (Version 1)
Quarter: 2014Q1

REPORT INFORMATION
  Report Type: Spontaneous
  Country: US (occurrence: US)
  Receive Date: 20140317
  Receipt Date: 20140317
  Transmission Date: 20141002
  Serious: No
  Sender: FDA-Public Use
  Company Number: US-PFIZER INC-2014074499

PATIENT
  Sex: Female

DRUGS (1)
  1. ATORVASTATIN CALCIUM [Suspect]
     Dosage: 50 MG, DAILY [TAKE ONE OF 40MG IN THE MORNING AND ONE OF 10MG IN THE EVENING]
     Dates: start: 20130601, end: 20130701

REACTIONS (1)
  - Myalgia [Unknown]
